FAERS Safety Report 15992665 (Version 2)
Quarter: 2019Q2

REPORT INFORMATION
  Report Type: Spontaneous
  Country: US (occurrence: US)
  Receive Date: 20190221
  Receipt Date: 20190411
  Transmission Date: 20190711
  Serious: No
  Sender: FDA-Public Use
  Company Number: US-STRONGBRIDGE BIOPHARMA-2019-STR-000034

PATIENT
  Age: 54 Year
  Sex: Male

DRUGS (1)
  1. KEVEYIS [Suspect]
     Active Substance: DICHLORPHENAMIDE
     Indication: NEURALGIA
     Dosage: 50 MG, BID
     Route: 048
     Dates: start: 20190121, end: 20190403

REACTIONS (4)
  - Off label use [Recovered/Resolved]
  - Spinal stenosis [Unknown]
  - Pain [Unknown]
  - Drug ineffective for unapproved indication [Not Recovered/Not Resolved]

NARRATIVE: CASE EVENT DATE: 20190121
